FAERS Safety Report 24960334 (Version 8)
Quarter: 2025Q3

REPORT INFORMATION
  Report Type: Report from Study
  Country: CA (occurrence: CA)
  Receive Date: 20250212
  Receipt Date: 20250908
  Transmission Date: 20251021
  Serious: Yes (Hospitalization, Other)
  Sender: TAKEDA
  Company Number: CA-TAKEDA-2024TUS058168

PATIENT
  Age: 75 Year
  Sex: Female

DRUGS (31)
  1. VEDOLIZUMAB [Suspect]
     Active Substance: VEDOLIZUMAB
     Indication: Colitis ulcerative
  2. VEDOLIZUMAB [Suspect]
     Active Substance: VEDOLIZUMAB
  3. VEDOLIZUMAB [Suspect]
     Active Substance: VEDOLIZUMAB
     Dosage: 300 MILLIGRAM, Q6WEEKS
     Dates: start: 20241203
  4. VEDOLIZUMAB [Suspect]
     Active Substance: VEDOLIZUMAB
     Dosage: 300 MILLIGRAM, Q4WEEKS
     Dates: start: 20250108
  5. VEDOLIZUMAB [Suspect]
     Active Substance: VEDOLIZUMAB
     Dosage: 300 MILLIGRAM, Q4WEEKS
  6. VEDOLIZUMAB [Suspect]
     Active Substance: VEDOLIZUMAB
     Dosage: 300 MILLIGRAM, Q4WEEKS
     Dates: end: 20250829
  7. ATENOLOL [Concomitant]
     Active Substance: ATENOLOL
  8. CELEBREX [Concomitant]
     Active Substance: CELECOXIB
  9. CYMBALTA [Concomitant]
     Active Substance: DULOXETINE HYDROCHLORIDE
  10. DOCUSATE SODIUM [Concomitant]
     Active Substance: DOCUSATE SODIUM
  11. ESOMEPRAZOLE [Concomitant]
     Active Substance: ESOMEPRAZOLE
  12. IRBESARTAN [Concomitant]
     Active Substance: IRBESARTAN
  13. LEVOTHYROXINE [Concomitant]
     Active Substance: LEVOTHYROXINE
  14. MESALAMINE [Concomitant]
     Active Substance: MESALAMINE
  15. MONTELUKAST [Concomitant]
     Active Substance: MONTELUKAST
  16. OZEMPIC [Concomitant]
     Active Substance: SEMAGLUTIDE
  17. RIVAROXABAN [Concomitant]
     Active Substance: RIVAROXABAN
  18. ROSUVASTATIN [Concomitant]
     Active Substance: ROSUVASTATIN
  19. SPIRIVA [Concomitant]
     Active Substance: TIOTROPIUM BROMIDE MONOHYDRATE
  20. ZENHALE [Concomitant]
     Active Substance: FORMOTEROL FUMARATE\MOMETASONE FUROATE
  21. VITAMIN B12 [Concomitant]
     Active Substance: CYANOCOBALAMIN
  22. VITAMIN D3 [Concomitant]
     Active Substance: CHOLECALCIFEROL
  23. FERAMAX [Concomitant]
     Active Substance: IRON\POLYSACCHARIDES
  24. GLUCOSAMINE [Concomitant]
     Active Substance: GLUCOSAMINE
  25. DIMETHYL SULFONE [Concomitant]
     Active Substance: DIMETHYL SULFONE
  26. MAGNESIUM [Concomitant]
     Active Substance: MAGNESIUM
  27. VITAMIN C [Concomitant]
     Active Substance: ASCORBIC ACID
  28. Cortiment [Concomitant]
  29. CALCIUM [Concomitant]
     Active Substance: CALCIUM
  30. CARBIDOPA\LEVODOPA [Concomitant]
     Active Substance: CARBIDOPA\LEVODOPA
  31. PENTASA [Concomitant]
     Active Substance: MESALAMINE

REACTIONS (6)
  - Colitis [Unknown]
  - Haemoglobin decreased [Unknown]
  - Clostridium difficile infection [Unknown]
  - Drug ineffective [Unknown]
  - Off label use [Unknown]
  - Urinary tract infection [Unknown]

NARRATIVE: CASE EVENT DATE: 20241203
